FAERS Safety Report 18779113 (Version 3)
Quarter: 2021Q3

REPORT INFORMATION
  Report Type: Other
  Country: DE (occurrence: DE)
  Receive Date: 20210125
  Receipt Date: 20210717
  Transmission Date: 20211014
  Serious: Yes (Life-Threatening, Hospitalization, Other)
  Sender: FDA-Public Use
  Company Number: DE-ROCHE-2752194

PATIENT
  Age: 20 Year
  Sex: Female

DRUGS (11)
  1. BIPERIDEN [Concomitant]
     Active Substance: BIPERIDEN
     Indication: CHOREOATHETOSIS
     Dosage: UNK
     Route: 065
  2. TOPIRAMATE. [Concomitant]
     Active Substance: TOPIRAMATE
  3. LACOSAMIDE. [Concomitant]
     Active Substance: LACOSAMIDE
  4. BORTEZOMIB. [Suspect]
     Active Substance: BORTEZOMIB
     Indication: ENCEPHALITIS AUTOIMMUNE
     Route: 065
  5. PREDNISOLONE. [Suspect]
     Active Substance: PREDNISOLONE
     Indication: ENCEPHALITIS AUTOIMMUNE
     Route: 065
  6. CYCLOPHOSPHAMIDE. [Suspect]
     Active Substance: CYCLOPHOSPHAMIDE
     Indication: ENCEPHALITIS AUTOIMMUNE
     Route: 065
  7. RITUXIMAB. [Suspect]
     Active Substance: RITUXIMAB
     Indication: ENCEPHALITIS AUTOIMMUNE
     Route: 065
  8. LEVETIRACETAM. [Concomitant]
     Active Substance: LEVETIRACETAM
  9. TIAPRIDE [Concomitant]
     Active Substance: TIAPRIDE
     Indication: CHOREOATHETOSIS
     Dosage: UNK
     Route: 065
  10. NACL [Concomitant]
     Active Substance: SODIUM CHLORIDE
     Indication: VEHICLE SOLUTION USE
     Dosage: 1000 MILLILITER, CYCLE, DARATUMUMAB WAS...
     Route: 041
  11. TETRABENAZINE. [Concomitant]
     Active Substance: TETRABENAZINE
     Indication: CHOREOATHETOSIS
     Dosage: UNK
     Route: 065

REACTIONS (6)
  - Urinary tract infection [Unknown]
  - Septic shock [Unknown]
  - Drug ineffective [Unknown]
  - Cytomegalovirus infection [Unknown]
  - Pneumonia cytomegaloviral [Unknown]
  - Off label use [Unknown]
